FAERS Safety Report 6594117-3 (Version None)
Quarter: 2010Q1

REPORT INFORMATION
  Report Type: 
  Country: None (occurrence: None)
  Receive Date: 20100222
  Receipt Date: 20100218
  Transmission Date: 20100710
  Serious: Yes (Death)
  Sender: FDA-Public Use
  Company Number: FR-ROCHE-683312

PATIENT
  Age: 42 Year
  Sex: Male

DRUGS (2)
  1. TAMIFLU [Suspect]
     Route: 065
  2. IBUPROFENE [Concomitant]

REACTIONS (1)
  - COMPLETED SUICIDE [None]
